FAERS Safety Report 4304002-5 (Version None)
Quarter: 2004Q1

REPORT INFORMATION
  Report Type: 
  Country: None (occurrence: None)
  Receive Date: 20040223
  Receipt Date: 20040116
  Transmission Date: 20041129
  Serious: No
  Sender: FDA-Public Use
  Company Number: PHEH2004US01017

PATIENT

DRUGS (1)
  1. ZELNORM [Suspect]

REACTIONS (2)
  - HYPERPHAGIA [None]
  - WEIGHT INCREASED [None]
